FAERS Safety Report 7508603-2 (Version None)
Quarter: 2011Q2

REPORT INFORMATION
  Report Type: 
  Country: None (occurrence: None)
  Receive Date: 20110527
  Receipt Date: 20101228
  Transmission Date: 20111010
  Serious: No
  Sender: FDA-Public Use
  Company Number: A0902560A

PATIENT
  Age: 49 Year
  Sex: Male
  Weight: 60 kg

DRUGS (20)
  1. METRONIDAZOLE [Concomitant]
     Dosage: 500MG THREE TIMES PER DAY
  2. PREDNISONE [Concomitant]
     Dosage: 5MG PER DAY
  3. REVATIO [Concomitant]
     Dosage: 20MG THREE TIMES PER DAY
  4. ZINC SULFATE [Concomitant]
     Dosage: 220MG PER DAY
  5. FUROSEMIDE [Concomitant]
     Dosage: 40MG PER DAY
  6. NEXIUM [Concomitant]
     Dosage: 40MG PER DAY
  7. SPIRONOLACTONE [Concomitant]
     Dosage: 50MG PER DAY
  8. LACTULOSE [Concomitant]
     Dosage: 30ML THREE TIMES PER DAY
  9. CEPHALEXIN [Concomitant]
     Dosage: 250MG THREE TIMES PER DAY
  10. MYFORTIC [Concomitant]
     Dosage: 360MG FOUR TIMES PER DAY
  11. METOPROLOL TARTRATE [Concomitant]
     Dosage: 25MG TWICE PER DAY
  12. PROGRAF [Concomitant]
     Dosage: 1MG TWICE PER DAY
  13. TRAMADOL HCL [Concomitant]
     Dosage: 50MG AS REQUIRED
  14. OXYGEN [Concomitant]
     Dosage: 3L CONTINUOUS
  15. PROSCAR [Concomitant]
     Dosage: 5MG PER DAY
  16. CELEXA [Concomitant]
     Dosage: 20MG PER DAY
  17. URSODIOL [Concomitant]
     Dosage: 500MG TWICE PER DAY
  18. FLOLAN [Suspect]
     Indication: PULMONARY ARTERIAL HYPERTENSION
     Route: 065
     Dates: start: 20091216
  19. MIRTAZAPINE [Concomitant]
     Dosage: 15MG PER DAY
  20. NYSTATIN [Concomitant]
     Dosage: 5ML FOUR TIMES PER DAY

REACTIONS (1)
  - PAIN IN JAW [None]
